FAERS Safety Report 9159978 (Version 2)
Quarter: 2013Q2

REPORT INFORMATION
  Report Type: Spontaneous
  Country: US (occurrence: US)
  Receive Date: 20130313
  Receipt Date: 20130603
  Transmission Date: 20140414
  Serious: Yes (Hospitalization)
  Sender: FDA-Public Use
  Company Number: US-VERTEX PHARMACEUTICALS INC.-2013-003362

PATIENT
  Age: 49 Year
  Sex: Female

DRUGS (4)
  1. INCIVEK [Suspect]
     Indication: HEPATITIS C
     Dosage: UNK, TID
     Route: 048
     Dates: start: 20121130, end: 20130204
  2. PEGASYS [Suspect]
     Indication: HEPATITIS C
     Dosage: UNK
     Dates: start: 20121130, end: 20130204
  3. RIBAVIRIN [Suspect]
     Indication: HEPATITIS C
     Dosage: 180 MG/KG, UNK
     Route: 058
     Dates: start: 20121130, end: 20130204
  4. ATRIPLA [Concomitant]

REACTIONS (2)
  - Cholelithiasis [Recovered/Resolved]
  - Off label use [Recovered/Resolved]
